FAERS Safety Report 21916805 (Version 2)
Quarter: 2023Q1

REPORT INFORMATION
  Report Type: Report from Study
  Country: FR (occurrence: FR)
  Receive Date: 20230126
  Receipt Date: 20230214
  Transmission Date: 20230417
  Serious: Yes (Other)
  Sender: FDA-Public Use
  Company Number: FR-GILEAD-2022-0580033

PATIENT
  Age: 57 Year
  Sex: Male
  Weight: 67 kg

DRUGS (15)
  1. LENACAPAVIR [Suspect]
     Active Substance: LENACAPAVIR
     Indication: HIV infection
     Dosage: 300 MG, Q1WK
     Route: 048
     Dates: start: 20220203
  2. LENACAPAVIR [Suspect]
     Active Substance: LENACAPAVIR
     Dosage: UNK UNK, Q1WK
     Route: 048
     Dates: start: 20210122
  3. LENACAPAVIR [Suspect]
     Active Substance: LENACAPAVIR
     Indication: HIV infection
     Dosage: 309 MG/ML
     Route: 058
     Dates: start: 20220818
  4. LENACAPAVIR [Suspect]
     Active Substance: LENACAPAVIR
     Dosage: UNK
     Route: 058
     Dates: start: 20210205, end: 20210804
  5. DOLUTEGRAVIR [Concomitant]
     Active Substance: DOLUTEGRAVIR
     Dosage: UNK, BID
  6. DOLUTEGRAVIR [Concomitant]
     Active Substance: DOLUTEGRAVIR
     Dosage: UNK, QD
  7. BIKTARVY [Concomitant]
     Active Substance: BICTEGRAVIR SODIUM\EMTRICITABINE\TENOFOVIR ALAFENAMIDE FUMARATE
     Indication: HIV infection
     Dosage: 1 DOSAGE FORM, QD
  8. TIVICAY [Concomitant]
     Active Substance: DOLUTEGRAVIR SODIUM
     Dosage: 50 MG, BID
  9. TROGARZO [Concomitant]
     Active Substance: IBALIZUMAB-UIYK
  10. RUKOBIA [Concomitant]
     Active Substance: FOSTEMSAVIR TROMETHAMINE
     Dosage: 600 MG, BID
  11. DORAVIRINE;ISLATRAVIR [Concomitant]
     Dosage: 1 DOSAGE FORM, QD
  12. ROSUVASTATIN [Concomitant]
     Active Substance: ROSUVASTATIN
  13. RAMIPRIL [Concomitant]
     Active Substance: RAMIPRIL
  14. BISOPROLOL [Concomitant]
     Active Substance: BISOPROLOL
  15. ASPIRIN\CLOPIDOGREL [Concomitant]
     Active Substance: ASPIRIN\CLOPIDOGREL

REACTIONS (4)
  - Syncope [Recovered/Resolved]
  - Tongue neoplasm malignant stage unspecified [Unknown]
  - Hyperhidrosis [Recovered/Resolved]
  - Injection site pain [Recovered/Resolved]

NARRATIVE: CASE EVENT DATE: 20220818
